FAERS Safety Report 4678301-1 (Version None)
Quarter: 2005Q2

REPORT INFORMATION
  Report Type: 
  Country: None (occurrence: None)
  Receive Date: 20050527
  Receipt Date: 20050517
  Transmission Date: 20051028
  Serious: Yes (Other)
  Sender: FDA-Public Use
  Company Number: 2005077105

PATIENT
  Age: 66 Year
  Sex: Male

DRUGS (1)
  1. TIKOSYN [Suspect]
     Indication: ATRIAL FIBRILLATION
     Dosage: (2 IN 1D), ORAL
     Route: 048
     Dates: start: 20050429, end: 20050501

REACTIONS (2)
  - INFLUENZA LIKE ILLNESS [None]
  - PNEUMONIA [None]
